FAERS Safety Report 6436678-0 (Version None)
Quarter: 2009Q4

REPORT INFORMATION
  Report Type: 
  Country: None (occurrence: None)
  Receive Date: 20091111
  Receipt Date: 20091030
  Transmission Date: 20100525
  Serious: Yes (Other)
  Sender: FDA-Public Use
  Company Number: JP-PFIZER INC-2009293043

PATIENT
  Age: 36 Year
  Sex: Female

DRUGS (1)
  1. CHAMPIX [Suspect]
     Indication: NICOTINE DEPENDENCE
     Dosage: 1 MG, 2X/DAY
     Route: 048
     Dates: start: 20091016, end: 20091023

REACTIONS (2)
  - HYPERTHYROIDISM [None]
  - NAUSEA [None]
